FAERS Safety Report 4475767-7 (Version None)
Quarter: 2004Q4

REPORT INFORMATION
  Report Type: 
  Country: None (occurrence: None)
  Receive Date: 20041015
  Receipt Date: 20041006
  Transmission Date: 20050328
  Serious: Yes (Other)
  Sender: FDA-Public Use
  Company Number: 04P-163-0250434-00

PATIENT
  Age: 44 Year
  Sex: Female

DRUGS (7)
  1. AMOXICILLIN [Suspect]
     Indication: DRUG USE FOR UNKNOWN INDICATION
     Dosage: 500MG FOUR TIMES PER DAY
     Route: 048
     Dates: start: 20040124, end: 20040128
  2. HUMIRA [Suspect]
     Indication: RHEUMATOID ARTHRITIS
     Dosage: 40MG FOUR TIMES PER DAY
     Route: 058
  3. IBUPROFEN [Suspect]
     Indication: DRUG USE FOR UNKNOWN INDICATION
     Dosage: 600MG FOUR TIMES PER DAY
     Route: 065
     Dates: start: 20040124, end: 20040128
  4. METHOTREXATE [Concomitant]
     Route: 065
  5. CELECOXIB [Concomitant]
     Route: 065
  6. HYDROXYCHLOROQUINE SULFATE [Concomitant]
     Dosage: 200MG TWICE PER DAY
     Route: 065
     Dates: start: 19940101, end: 20040125
  7. FOLIC ACID [Concomitant]
     Route: 065
     Dates: start: 19940101, end: 20040125

REACTIONS (6)
  - HAEMOGLOBIN DECREASED [None]
  - INFLUENZA LIKE ILLNESS [None]
  - LYMPHADENOPATHY [None]
  - MENINGITIS ASEPTIC [None]
  - PLATELET COUNT DECREASED [None]
  - SYNOVITIS [None]
